FAERS Safety Report 18412688 (Version 2)
Quarter: 2020Q4

REPORT INFORMATION
  Report Type: Report from Study
  Country: None (occurrence: US)
  Receive Date: 20201022
  Receipt Date: 20201127
  Transmission Date: 20210114
  Serious: Yes (Life-Threatening, Other)
  Sender: FDA-Public Use
  Company Number: US-ABBVIE-20K-163-3547971-00

PATIENT
  Sex: Female
  Weight: 106.69 kg

DRUGS (2)
  1. CYMBALTA [Concomitant]
     Active Substance: DULOXETINE HYDROCHLORIDE
     Indication: DEPRESSION
  2. ORILISSA [Suspect]
     Active Substance: ELAGOLIX SODIUM
     Indication: ENDOMETRIOSIS
     Route: 048
     Dates: start: 202009, end: 202010

REACTIONS (8)
  - Vaginal haemorrhage [Recovered/Resolved]
  - Suicidal ideation [Recovered/Resolved]
  - Vomiting [Recovered/Resolved]
  - Feeling abnormal [Not Recovered/Not Resolved]
  - Illness [Not Recovered/Not Resolved]
  - Headache [Not Recovered/Not Resolved]
  - Dizziness [Recovered/Resolved]
  - Depression [Not Recovered/Not Resolved]

NARRATIVE: CASE EVENT DATE: 2020
